FAERS Safety Report 7769064-1 (Version None)
Quarter: 2011Q3

REPORT INFORMATION
  Report Type: 
  Country: None (occurrence: None)
  Receive Date: 20110922
  Receipt Date: 20100412
  Transmission Date: 20111222
  Serious: No
  Sender: FDA-Public Use
  Company Number: US-ASTRAZENECA-2009UW17212

PATIENT
  Sex: Female

DRUGS (9)
  1. NEURONTIN [Concomitant]
     Route: 048
     Dates: start: 20081209
  2. LISINOPRIL [Concomitant]
     Route: 048
     Dates: start: 20081209
  3. BAYER [Concomitant]
     Dosage: 81 MG
     Dates: start: 20081209
  4. FUROSEMIDE [Concomitant]
     Dates: start: 20081209
  5. POTASSIUM CHLORIDE [Concomitant]
     Route: 048
     Dates: start: 20081209
  6. VISTARIL [Concomitant]
     Route: 048
     Dates: start: 20081209
  7. SEROQUEL [Suspect]
     Route: 048
     Dates: start: 20081209
  8. CELEXA [Concomitant]
     Route: 048
     Dates: start: 20081209
  9. TORADOL KETOROLAC TROMETH [Concomitant]
     Dates: start: 20081209

REACTIONS (2)
  - VISUAL ACUITY REDUCED [None]
  - DIABETES MELLITUS [None]
